FAERS Safety Report 25768183 (Version 1)
Quarter: 2025Q3

REPORT INFORMATION
  Report Type: Spontaneous
  Country: US (occurrence: US)
  Receive Date: 20250905
  Receipt Date: 20250905
  Transmission Date: 20251021
  Serious: No
  Sender: DOMPE FARMACEUTICI
  Company Number: US-FARMAPROD-202506-1844

PATIENT
  Age: 66 Year
  Sex: Female

DRUGS (13)
  1. OXERVATE [Suspect]
     Active Substance: CENEGERMIN-BKBJ
     Indication: Neurotrophic keratopathy
     Route: 047
     Dates: start: 20250529
  2. OXERVATE [Suspect]
     Active Substance: CENEGERMIN-BKBJ
  3. ENZYME DIGEST [Concomitant]
  4. VITAMIN D3-VITAMIN K2 [Concomitant]
  5. VITAMIN E [Concomitant]
     Active Substance: .ALPHA.-TOCOPHEROL
  6. VITAMINS [Concomitant]
     Active Substance: VITAMINS
  7. TIMOLOL [Concomitant]
     Active Substance: TIMOLOL
  8. ESTRADIOL [Concomitant]
     Active Substance: ESTRADIOL
  9. LATANOPROST [Concomitant]
     Active Substance: LATANOPROST
  10. TYRVAYA [Concomitant]
     Active Substance: VARENICLINE TARTRATE
  11. CARVEDILOL [Concomitant]
     Active Substance: CARVEDILOL
  12. ATORVASTATIN CALCIUM [Concomitant]
     Active Substance: ATORVASTATIN CALCIUM
  13. OLMESARTAN MEDOXOMIL [Concomitant]
     Active Substance: OLMESARTAN MEDOXOMIL

REACTIONS (5)
  - Eye pain [Not Recovered/Not Resolved]
  - Headache [Not Recovered/Not Resolved]
  - Periorbital pain [Unknown]
  - Photophobia [Unknown]
  - Ocular discomfort [Unknown]

NARRATIVE: CASE EVENT DATE: 20250529
